FAERS Safety Report 14117139 (Version 1)
Quarter: 2017Q4

REPORT INFORMATION
  Report Type: Spontaneous
  Country: US (occurrence: US)
  Receive Date: 20171023
  Receipt Date: 20171023
  Transmission Date: 20180321
  Serious: Yes (Other)
  Sender: FDA-Public Use
  Company Number: US-ABBVIE-16P-163-1748870-00

PATIENT
  Sex: Female

DRUGS (4)
  1. DEPO [Suspect]
     Active Substance: UNSPECIFIED INGREDIENT
     Indication: CYST
  2. LUPRON [Suspect]
     Active Substance: LEUPROLIDE ACETATE
     Indication: ENDOMETRIOSIS
     Route: 050
     Dates: start: 2015, end: 2015
  3. LUPRON [Suspect]
     Active Substance: LEUPROLIDE ACETATE
     Indication: CYST
  4. DEPO [Suspect]
     Active Substance: UNSPECIFIED INGREDIENT
     Indication: ENDOMETRIOSIS
     Route: 065

REACTIONS (5)
  - Symptom masked [Unknown]
  - Menstrual disorder [Unknown]
  - Endometriosis [Unknown]
  - Psychotic disorder [Unknown]
  - Premature menopause [Unknown]

NARRATIVE: CASE EVENT DATE: 201506
